FAERS Safety Report 11472533 (Version 2)
Quarter: 2015Q4

REPORT INFORMATION
  Report Type: Spontaneous
  Country: JP (occurrence: JP)
  Receive Date: 20150908
  Receipt Date: 20151026
  Transmission Date: 20160304
  Serious: Yes (Life-Threatening)
  Sender: FDA-Public Use
  Company Number: JP-PFIZER INC-2015245925

PATIENT
  Age: 56 Year
  Sex: Male
  Weight: 48 kg

DRUGS (8)
  1. CLOTIAZEPAM [Suspect]
     Active Substance: CLOTIAZEPAM
     Dosage: UNK
     Route: 048
  2. DEPAS [Suspect]
     Active Substance: ETIZOLAM
  3. LYRICA [Suspect]
     Active Substance: PREGABALIN
     Indication: DIABETIC NEUROPATHY
     Dosage: 75 MG, 1X/DAY
     Route: 048
     Dates: start: 20150718, end: 20150722
  4. CYMBALTA [Concomitant]
     Active Substance: DULOXETINE HYDROCHLORIDE
     Indication: NAUSEA
     Dosage: 20 MG, 1X/DAY
     Route: 048
     Dates: start: 20150630
  5. MEXITIL [Concomitant]
     Active Substance: MEXILETINE HYDROCHLORIDE
     Dosage: 100 MG, 3X/DAY
     Route: 048
     Dates: start: 20150701
  6. EPALRESTAT [Concomitant]
     Active Substance: EPALRESTAT
     Dosage: 50 MG, 3X/DAY
     Route: 048
     Dates: start: 20150704
  7. CYMBALTA [Concomitant]
     Active Substance: DULOXETINE HYDROCHLORIDE
     Indication: DYSPHORIA
  8. LYRICA [Suspect]
     Active Substance: PREGABALIN
     Dosage: 75 MG, 2X/DAY
     Route: 048
     Dates: start: 20150723

REACTIONS (2)
  - Confusional state [Unknown]
  - Euphoric mood [Unknown]

NARRATIVE: CASE EVENT DATE: 20150719
